FAERS Safety Report 8380522-1 (Version None)
Quarter: 2012Q2

REPORT INFORMATION
  Report Type: 
  Country: None (occurrence: None)
  Receive Date: 20120523
  Receipt Date: 20120516
  Transmission Date: 20120825
  Serious: Yes (Hospitalization, Other)
  Sender: FDA-Public Use
  Company Number: BR-ROCHE-1062362

PATIENT
  Sex: Female

DRUGS (14)
  1. PREDNISONE [Concomitant]
  2. ENALAPRIL MALEATE [Concomitant]
  3. METFORMIN HCL [Concomitant]
  4. INSULIN [Concomitant]
  5. XOLAIR [Suspect]
     Indication: ASTHMA
     Route: 058
  6. ROFLUMILAST [Concomitant]
  7. BAMIFIX [Concomitant]
  8. BUDESONIDE [Concomitant]
  9. CALCIUM CARBONATE [Concomitant]
  10. FLUOXETINE HCL [Concomitant]
  11. XOLAIR [Suspect]
     Route: 058
     Dates: start: 20111201
  12. ALENIA (BRAZIL) [Concomitant]
  13. SIMVASTATIN [Concomitant]
  14. CAMPHOR/METHYL SALICYLATE [Concomitant]

REACTIONS (2)
  - PNEUMONIA [None]
  - BLOOD PRESSURE DECREASED [None]
